FAERS Safety Report 20736423 (Version 16)
Quarter: 2025Q1

REPORT INFORMATION
  Report Type: Report from Study
  Country: DE (occurrence: DE)
  Receive Date: 20220421
  Receipt Date: 20250212
  Transmission Date: 20250408
  Serious: Yes (Other)
  Sender: ROCHE
  Company Number: DE-ROCHE-2614718

PATIENT
  Age: 33 Year
  Sex: Female
  Weight: 67.0 kg

DRUGS (14)
  1. OCREVUS [Suspect]
     Active Substance: OCRELIZUMAB
     Indication: Relapsing-remitting multiple sclerosis
     Dosage: 600 MG FREQUENCY: 183 DAYS
     Route: 042
     Dates: start: 20200527
  2. OCREVUS [Suspect]
     Active Substance: OCRELIZUMAB
     Indication: Primary progressive multiple sclerosis
     Route: 042
     Dates: start: 20200610
  3. OCREVUS [Suspect]
     Active Substance: OCRELIZUMAB
     Route: 042
  4. OCREVUS [Suspect]
     Active Substance: OCRELIZUMAB
     Route: 042
     Dates: start: 20210618
  5. OCREVUS [Suspect]
     Active Substance: OCRELIZUMAB
     Route: 042
  6. OCREVUS [Suspect]
     Active Substance: OCRELIZUMAB
     Route: 042
     Dates: start: 20200527
  7. PIPAMPERONE [Concomitant]
     Active Substance: PIPAMPERONE
     Dosage: 0-0-1
  8. PIPAMPERONE [Concomitant]
     Active Substance: PIPAMPERONE
     Dosage: 0-0-1
  9. SERTRALINE [Concomitant]
     Active Substance: SERTRALINE HYDROCHLORIDE
  10. SERTRALINE [Concomitant]
     Active Substance: SERTRALINE HYDROCHLORIDE
  11. AGOMELATINE [Concomitant]
     Active Substance: AGOMELATINE
  12. METAMIZOLE [Concomitant]
     Active Substance: METAMIZOLE
  13. TILIDINE [Concomitant]
     Active Substance: TILIDINE
  14. PENICILLIN [Concomitant]
     Active Substance: PENICILLIN

REACTIONS (43)
  - Asthma [Recovered/Resolved]
  - Headache [Recovered/Resolved]
  - Nausea [Recovered/Resolved]
  - Fatigue [Not Recovered/Not Resolved]
  - Decreased appetite [Not Recovered/Not Resolved]
  - Nasopharyngitis [Recovered/Resolved]
  - Gait inability [Not Recovered/Not Resolved]
  - Drug ineffective [Unknown]
  - Magnetic resonance imaging abnormal [Recovering/Resolving]
  - Balance disorder [Not Recovered/Not Resolved]
  - Temperature intolerance [Recovered/Resolved]
  - Depression [Recovered/Resolved]
  - Post-traumatic stress disorder [Recovered/Resolved]
  - Hyperaesthesia [Recovered/Resolved]
  - Borderline personality disorder [Recovered/Resolved]
  - Lipoedema [Not Recovered/Not Resolved]
  - Rheumatoid vasculitis [Recovering/Resolving]
  - Endometriosis [Recovered/Resolved]
  - Weight decreased [Recovering/Resolving]
  - Mood swings [Not Recovered/Not Resolved]
  - Hypoacusis [Recovered/Resolved]
  - Hypersensitivity [Not Recovered/Not Resolved]
  - Fall [Unknown]
  - Haematoma [Recovered/Resolved]
  - Coeliac disease [Recovered/Resolved]
  - COVID-19 [Unknown]
  - Pruritus [Recovered/Resolved]
  - Acne [Recovered/Resolved]
  - Throat irritation [Unknown]
  - Uhthoff^s phenomenon [Recovered/Resolved]
  - Lactose intolerance [Unknown]
  - Abdominal pain upper [Recovered/Resolved]
  - Gait disturbance [Not Recovered/Not Resolved]
  - Peripheral coldness [Recovered/Resolved]
  - Irritable bowel syndrome [Not Recovered/Not Resolved]
  - Sinusitis [Recovered/Resolved]
  - Arthralgia [Recovering/Resolving]
  - Sleep disorder [Not Recovered/Not Resolved]
  - Drug dependence [Not Recovered/Not Resolved]
  - Cystitis [Unknown]
  - Influenza like illness [Not Recovered/Not Resolved]
  - Scar pain [Recovered/Resolved]
  - Asthenia [Recovered/Resolved]

NARRATIVE: CASE EVENT DATE: 20200527
